FAERS Safety Report 7919756-6 (Version None)
Quarter: 2011Q4

REPORT INFORMATION
  Report Type: 
  Country: None (occurrence: None)
  Receive Date: 20111117
  Receipt Date: 20111109
  Transmission Date: 20120403
  Serious: Yes (Other)
  Sender: FDA-Public Use
  Company Number: GB-ASTELLAS-2011EU002438

PATIENT
  Sex: Female
  Weight: 22 kg

DRUGS (8)
  1. DOUBLEBASE [Concomitant]
     Indication: DERMATITIS ATOPIC
     Dosage: UNK
     Route: 061
     Dates: start: 20100303
  2. 50/50 LIQUID PARAFFIN, WHITE SOFT PARAFFIN [Concomitant]
     Indication: DERMATITIS ATOPIC
     Dosage: UNK
     Route: 061
     Dates: start: 20100303
  3. BETNOVATE [Concomitant]
     Indication: DERMATITIS ATOPIC
     Dosage: UNK
     Route: 061
     Dates: start: 20100113
  4. BETNOVATE RD [Concomitant]
     Indication: DERMATITIS ATOPIC
     Dosage: UNK
     Route: 061
     Dates: start: 20100209
  5. FUCIBET [Concomitant]
     Indication: DERMATITIS ATOPIC
     Dosage: UNK
     Route: 065
  6. TACROLIMUS [Suspect]
     Indication: DERMATITIS ATOPIC
     Dosage: 0.03 %, BID
     Route: 065
     Dates: start: 20100113
  7. OILATUM [Concomitant]
     Indication: DERMATITIS ATOPIC
     Dosage: UNK
     Route: 061
     Dates: start: 20100303
  8. BETNOVATE [Concomitant]
     Dosage: UNK
     Route: 061
     Dates: start: 20100303

REACTIONS (1)
  - LYMPHADENOPATHY [None]
